FAERS Safety Report 18153830 (Version 4)
Quarter: 2020Q3

REPORT INFORMATION
  Report Type: Spontaneous
  Country: AT (occurrence: AT)
  Receive Date: 20200816
  Receipt Date: 20200930
  Transmission Date: 20201103
  Serious: Yes (Life-Threatening, Hospitalization, Other)
  Sender: FDA-Public Use
  Company Number: NVSC2020AT225729

PATIENT
  Age: 32 Year
  Sex: Male

DRUGS (17)
  1. RUFINAMIDE [Interacting]
     Active Substance: RUFINAMIDE
     Indication: PARTIAL SEIZURES
     Dosage: 2400 MG, QD, DOSE OF VALPROIC ACID AT FIRST REDUCED AND THEN ENDED
     Route: 048
  2. SERTRALINE [Concomitant]
     Active Substance: SERTRALINE HYDROCHLORIDE
     Indication: BORDERLINE PERSONALITY DISORDER
     Dosage: 50 MG, QD
     Route: 065
  3. QUETIAPINE. [Suspect]
     Active Substance: QUETIAPINE
     Indication: BORDERLINE PERSONALITY DISORDER
     Dosage: 300 MG, QD
     Route: 065
  4. LEVETIRACETAM. [Suspect]
     Active Substance: LEVETIRACETAM
     Indication: PARTIAL SEIZURES
     Dosage: 3000 MG, QD
     Route: 065
  5. CHLORPROTHIXENE [Concomitant]
     Active Substance: CHLORPROTHIXENE
     Indication: PRODUCT USED FOR UNKNOWN INDICATION
     Dosage: UNK
     Route: 065
  6. CLOBAZAM. [Concomitant]
     Active Substance: CLOBAZAM
     Indication: GENERALISED TONIC-CLONIC SEIZURE
     Dosage: 40 MG, QD
     Route: 065
  7. PERAMPANEL [Suspect]
     Active Substance: PERAMPANEL
     Indication: PARTIAL SEIZURES
     Dosage: DOSE UNKNOWN (INTENTIONAL OVERDOSE)
     Route: 048
  8. LEVETIRACETAM. [Suspect]
     Active Substance: LEVETIRACETAM
     Indication: GENERALISED TONIC-CLONIC SEIZURE
     Dosage: DOSE UNKNOWN (INTENTIONAL OVERDOSE)
     Route: 065
  9. PERAMPANEL [Suspect]
     Active Substance: PERAMPANEL
     Indication: GENERALISED TONIC-CLONIC SEIZURE
  10. RUFINAMIDE [Interacting]
     Active Substance: RUFINAMIDE
     Indication: GENERALISED TONIC-CLONIC SEIZURE
     Dosage: 2000 MG, QD
     Route: 048
  11. VALPROIC ACID. [Interacting]
     Active Substance: VALPROIC ACID
     Indication: GENERALISED TONIC-CLONIC SEIZURE
     Dosage: 2400 MG, QD, DOSE OF VALPROIC ACID AT FIRST REDUCED AND THEN ENDED
     Route: 041
  12. VALPROIC ACID. [Interacting]
     Active Substance: VALPROIC ACID
     Dosage: 2400 MG, QD
     Route: 042
  13. CITALOPRAM [Concomitant]
     Active Substance: CITALOPRAM HYDROBROMIDE
     Indication: BORDERLINE PERSONALITY DISORDER
     Dosage: 10 MG, QD
     Route: 065
  14. VALPROIC ACID. [Interacting]
     Active Substance: VALPROIC ACID
     Indication: PARTIAL SEIZURES
     Dosage: REDUCED DOSE AND FREQUENCY UNKNOWN
     Route: 048
  15. CLOBAZAM. [Concomitant]
     Active Substance: CLOBAZAM
     Indication: PARTIAL SEIZURES
  16. QUETIAPINE. [Suspect]
     Active Substance: QUETIAPINE
     Dosage: 500 MG FREQUENCY UNKNOWN
     Route: 065
  17. QUETIAPINE. [Suspect]
     Active Substance: QUETIAPINE
     Dosage: DOSE UNKNOWN (INTENTIONAL OVERDOSE)
     Route: 065

REACTIONS (13)
  - Intentional overdose [Recovered/Resolved]
  - Nystagmus [Recovered/Resolved]
  - Leukopenia [Recovered/Resolved]
  - Vomiting [Recovered/Resolved]
  - Nausea [Recovered/Resolved]
  - Suicide attempt [Recovered/Resolved]
  - Delirium [Recovered/Resolved]
  - Drug interaction [Recovered/Resolved]
  - Aggression [Unknown]
  - Dizziness [Recovered/Resolved]
  - Thrombocytopenia [Recovered/Resolved]
  - Anticonvulsant drug level increased [Unknown]
  - Toxicity to various agents [Recovered/Resolved]
